FAERS Safety Report 10507744 (Version 1)
Quarter: 2014Q3

REPORT INFORMATION
  Report Type: Spontaneous
  Country: US (occurrence: None)
  Receive Date: 20140915
  Receipt Date: 20140915
  Transmission Date: 20150326
  Serious: Yes (Other)
  Sender: FDA-Public Use
  Company Number: 2013-US-001892

PATIENT
  Age: 30 Year
  Sex: Male

DRUGS (8)
  1. BUPROPION [Concomitant]
     Active Substance: BUPROPION
  2. AZELASTINE [Concomitant]
     Active Substance: AZELASTINE
  3. VENLAFAXINE [Concomitant]
     Active Substance: VENLAFAXINE HYDROCHLORIDE
  4. VITAMIN D3 [Concomitant]
     Active Substance: CHOLECALCIFEROL
  5. EXCEDRIN [Concomitant]
     Active Substance: ACETAMINOPHEN\ASPIRIN\CAFFEINE
  6. XYREM [Suspect]
     Active Substance: SODIUM OXYBATE
     Indication: NARCOLEPSY
     Route: 048
     Dates: start: 201209, end: 2012
  7. IBUPROFEN. [Concomitant]
     Active Substance: IBUPROFEN
  8. FLUTICASONE [Concomitant]
     Active Substance: FLUTICASONE\FLUTICASONE PROPIONATE

REACTIONS (3)
  - Scar [None]
  - Depression [None]
  - Middle insomnia [None]

NARRATIVE: CASE EVENT DATE: 201210
